FAERS Safety Report 25221166 (Version 1)
Quarter: 2025Q2

REPORT INFORMATION
  Report Type: Spontaneous
  Country: US (occurrence: None)
  Receive Date: 20250421
  Receipt Date: 20250421
  Transmission Date: 20250717
  Serious: Yes (Hospitalization)
  Sender: FDA-CTU
  Company Number: None

PATIENT
  Age: 44 Year
  Sex: Male

DRUGS (2)
  1. TADALAFIL [Suspect]
     Active Substance: TADALAFIL
     Indication: Product used for unknown indication
     Dosage: 40MG QD ?
  2. ORENITRAM [Suspect]
     Active Substance: TREPROSTINIL

REACTIONS (7)
  - Fluid retention [None]
  - Clostridium difficile infection [None]
  - Nocardiosis [None]
  - Pneumonia [None]
  - Blood creatinine increased [None]
  - Cardiac failure [None]
  - Exercise tolerance decreased [None]
